FAERS Safety Report 16624294 (Version 1)
Quarter: 2019Q3

REPORT INFORMATION
  Report Type: Spontaneous
  Country: JP (occurrence: JP)
  Receive Date: 20190724
  Receipt Date: 20190724
  Transmission Date: 20191004
  Serious: Yes (Other)
  Sender: FDA-Public Use
  Company Number: JP-009507513-1907JPN013615

PATIENT
  Age: 68 Year
  Sex: Male
  Weight: 41.5 kg

DRUGS (13)
  1. CIPROXAN [Concomitant]
     Active Substance: CIPROFLOXACIN
     Indication: SKIN INFECTION
     Dosage: 400 MILLIGRAM, QD
     Route: 041
     Dates: start: 20180910, end: 20180916
  2. CIPROXAN [Concomitant]
     Active Substance: CIPROFLOXACIN
     Indication: OSTEOMYELITIS
  3. AZACTAM [Concomitant]
     Active Substance: AZTREONAM
     Indication: SKIN INFECTION
     Dosage: 1 G, QD
     Route: 041
     Dates: start: 20181001, end: 20181012
  4. TAZOPIPE [Concomitant]
     Active Substance: PIPERACILLIN SODIUM\TAZOBACTAM SODIUM
     Indication: OSTEOMYELITIS
  5. AZACTAM [Concomitant]
     Active Substance: AZTREONAM
     Indication: OSTEOMYELITIS
  6. TEDIZOLID PHOSPHATE. [Suspect]
     Active Substance: TEDIZOLID PHOSPHATE
     Dosage: 200 MG, QD
     Route: 048
     Dates: start: 20180917, end: 20180926
  7. CUBICIN [Concomitant]
     Active Substance: DAPTOMYCIN
     Indication: OSTEOMYELITIS
     Dosage: 250 MILLIGRAM, QD
     Route: 041
     Dates: start: 20180927, end: 20181012
  8. FLAGYL [Concomitant]
     Active Substance: METRONIDAZOLE\METRONIDAZOLE HYDROCHLORIDE
     Indication: SKIN INFECTION
     Dosage: 500 MILLIGRAM, TID
     Route: 048
     Dates: start: 20180910, end: 20180930
  9. CIPROXAN [Concomitant]
     Active Substance: CIPROFLOXACIN
     Indication: OSTEOMYELITIS
  10. TAZOPIPE [Concomitant]
     Active Substance: PIPERACILLIN SODIUM\TAZOBACTAM SODIUM
     Indication: SKIN INFECTION
     Dosage: 2.25 GRAM, TID
     Route: 041
     Dates: start: 20180906, end: 20180910
  11. CUBICIN [Concomitant]
     Active Substance: DAPTOMYCIN
     Indication: SKIN INFECTION
     Dosage: 200 MILLIGRAM, QD
     Route: 041
     Dates: start: 20180906, end: 20180916
  12. CIPROXAN [Concomitant]
     Active Substance: CIPROFLOXACIN
     Indication: SKIN INFECTION
     Dosage: 200 MILLIGRAM, QD
     Route: 048
     Dates: start: 20180917, end: 20180930
  13. FLAGYL [Concomitant]
     Active Substance: METRONIDAZOLE\METRONIDAZOLE HYDROCHLORIDE
     Indication: OSTEOMYELITIS

REACTIONS (2)
  - Nausea [Recovered/Resolved]
  - Platelet count decreased [Recovered/Resolved]

NARRATIVE: CASE EVENT DATE: 20180923
